FAERS Safety Report 10956487 (Version 1)
Quarter: 2015Q1

REPORT INFORMATION
  Report Type: Spontaneous
  Country: US (occurrence: None)
  Receive Date: 20150325
  Receipt Date: 20150325
  Transmission Date: 20150721
  Serious: No
  Sender: FDA-Public Use
  Company Number: None

PATIENT
  Sex: Male
  Weight: 86.18 kg

DRUGS (13)
  1. CREST COMPLETE MULTI-BENEFIT EXTRA WHITENING WITH TARTAR PROTECTION [Suspect]
     Active Substance: SODIUM FLUORIDE
     Indication: TOOTH DEPOSIT
     Route: 048
     Dates: start: 201401, end: 201502
  2. CREST COMPLETE MULTI-BENEFIT EXTRA WHITENING WITH TARTAR PROTECTION [Suspect]
     Active Substance: SODIUM FLUORIDE
     Indication: PROPHYLAXIS
     Route: 048
     Dates: start: 201401, end: 201502
  3. METROPROLOL [Concomitant]
     Active Substance: METOPROLOL
  4. PRAVASTATIN [Concomitant]
     Active Substance: PRAVASTATIN\PRAVASTATIN SODIUM
  5. FUROSEMIDE. [Concomitant]
     Active Substance: FUROSEMIDE
  6. VITAMIN D [Concomitant]
     Active Substance: CHOLECALCIFEROL
  7. THERESA EYE DROPS [Concomitant]
  8. COLGATE TOTAL ADVANCED CLEAN [Suspect]
     Active Substance: SODIUM FLUORIDE\TRICLOSAN
  9. FISH OIL [Concomitant]
     Active Substance: FISH OIL
  10. CREST COMPLETE MULTI-BENEFIT EXTRA WHITENING WITH TARTAR PROTECTION [Suspect]
     Active Substance: SODIUM FLUORIDE
     Indication: DENTAL COSMETIC PROCEDURE
     Route: 048
     Dates: start: 201401, end: 201502
  11. GABAPETIN [Concomitant]
  12. CENTRUM SILVER [Concomitant]
     Active Substance: VITAMINS
  13. VITAMIN B [Concomitant]
     Active Substance: VITAMIN B

REACTIONS (1)
  - Oral mucosal exfoliation [None]
